FAERS Safety Report 9213013 (Version 1)
Quarter: 2013Q2

REPORT INFORMATION
  Report Type: Report from Study
  Country: US (occurrence: US)
  Receive Date: 20130405
  Receipt Date: 20130405
  Transmission Date: 20140414
  Serious: Yes (Hospitalization, Other)
  Sender: FDA-Public Use
  Company Number: US-GENZYME-LEUK-1000342

PATIENT
  Age: 79 Year
  Sex: Male
  Weight: 102.3 kg

DRUGS (15)
  1. LEUKINE [Suspect]
     Indication: PLASMA CELL MYELOMA
     Dosage: 250 MCG, QD, 35TH COURSE
     Route: 058
     Dates: start: 20130301
  2. IPILIMUMAB [Suspect]
     Indication: PLASMA CELL MYELOMA
     Dosage: 10 MG/KG IV OVER 90 MIN ON DAY 1 Q12 WEEKS
     Route: 042
  3. HUMALOG [Concomitant]
     Indication: PRODUCT USED FOR UNKNOWN INDICATION
     Dosage: 100 U/ML, UNK
     Route: 058
  4. LANTUS [Concomitant]
     Indication: PRODUCT USED FOR UNKNOWN INDICATION
     Dosage: 75 U, QD
     Route: 058
  5. LISINOPRIL [Concomitant]
     Indication: PRODUCT USED FOR UNKNOWN INDICATION
     Dosage: 40 MG, QD
     Route: 065
  6. SPIRIVA [Concomitant]
     Indication: PRODUCT USED FOR UNKNOWN INDICATION
     Dosage: 18 MCG, QD
     Route: 065
  7. HYDROCORTISONE [Concomitant]
     Indication: PLASMA CELL MYELOMA
     Dosage: 40 MG MORNING, 20 MG EVENING
     Route: 065
  8. VYTORIN [Concomitant]
     Indication: HYPERLIPIDAEMIA
     Dosage: 40 MG, QD
     Route: 065
  9. PRODAXIA [Concomitant]
     Indication: PRODUCT USED FOR UNKNOWN INDICATION
     Dosage: 150 MG, BID
     Route: 065
  10. METOPROLOL [Concomitant]
     Indication: HYPERTENSION
     Dosage: 75 MG, BID
     Route: 065
  11. STATIN [Concomitant]
     Indication: DYSLIPIDAEMIA
     Dosage: UNK
     Route: 065
  12. AEROSOL SPITZNER [Concomitant]
     Indication: CHRONIC OBSTRUCTIVE PULMONARY DISEASE
     Dosage: UNK
     Route: 065
  13. KLOR-CON [Concomitant]
     Indication: PRODUCT USED FOR UNKNOWN INDICATION
     Dosage: 10 MEQ, QD
     Route: 065
  14. OSCAL [Concomitant]
     Indication: OSTEOARTHRITIS
     Dosage: 1100 MG, QD
  15. FISH OIL [Concomitant]
     Indication: DYSLIPIDAEMIA
     Dosage: 1780 MG, QD
     Route: 065

REACTIONS (2)
  - Cardiac failure chronic [Unknown]
  - Non-cardiac chest pain [Unknown]
